FAERS Safety Report 16889419 (Version 1)
Quarter: 2019Q4

REPORT INFORMATION
  Report Type: Spontaneous
  Country: US (occurrence: US)
  Receive Date: 20191007
  Receipt Date: 20191007
  Transmission Date: 20200122
  Serious: Yes (Death, Life-Threatening, Other)
  Sender: FDA-Public Use
  Company Number: US-CIPLA LTD.-2019US06651

PATIENT

DRUGS (3)
  1. OXYCODONE [Suspect]
     Active Substance: OXYCODONE
     Indication: PRODUCT USED FOR UNKNOWN INDICATION
     Dosage: 370 MILLILITER, IN TOTAL, 4-DAY SUPPLY BOTTLE CONTAINING 420 ML LIQUID (5-15 ML UPTO 4 TIMES A DAY)
     Route: 048
  2. OXYCODONE HYDROCHLORIDE;PARACETAMOL [Suspect]
     Active Substance: ACETAMINOPHEN\OXYCODONE HYDROCHLORIDE
     Indication: PRODUCT USED FOR UNKNOWN INDICATION
     Dosage: 22 DOSAGE FORM, IN TOTAL (CONSUMED 3 TIMES A DAY + LEFT WITH 68 OF 30-DAY SUPPLY I.E, 90 TABLETS)
     Route: 048
  3. GABAPENTIN. [Suspect]
     Active Substance: GABAPENTIN
     Indication: PRODUCT USED FOR UNKNOWN INDICATION
     Dosage: UNK
     Route: 065

REACTIONS (3)
  - Unresponsive to stimuli [Unknown]
  - Toxicity to various agents [Fatal]
  - Disorientation [Unknown]
